FAERS Safety Report 9995592 (Version 1)
Quarter: 2014Q1

REPORT INFORMATION
  Report Type: Spontaneous
  Country: US (occurrence: None)
  Receive Date: 20140307
  Receipt Date: 20140307
  Transmission Date: 20141002
  Serious: Yes (Hospitalization, Disabling)
  Sender: FDA-Public Use
  Company Number: None

PATIENT
  Age: 29 Year
  Sex: Female
  Weight: 54.43 kg

DRUGS (2)
  1. MIRENA IUD [Suspect]
     Indication: CONTRACEPTION
     Dates: start: 20120510, end: 20130318
  2. PRENATAL VITAMINS [Concomitant]

REACTIONS (3)
  - Cyst [None]
  - Muscle spasms [None]
  - Device dislocation [None]
